FAERS Safety Report 5034538-3 (Version None)
Quarter: 2006Q2

REPORT INFORMATION
  Report Type: 
  Country: None (occurrence: None)
  Receive Date: 20060626
  Receipt Date: 20060524
  Transmission Date: 20061013
  Serious: Yes (Hospitalization)
  Sender: FDA-Public Use
  Company Number: CA-NOVOPROD-253667

PATIENT
  Age: 68 Year
  Sex: Female
  Weight: 120 kg

DRUGS (10)
  1. LEVEMIR [Suspect]
     Indication: DIABETES MELLITUS
     Dosage: 40 IU, QD
     Route: 058
     Dates: start: 20051114, end: 20060128
  2. FUROSEMIDE [Concomitant]
     Dosage: 40 MG, UNK
     Route: 048
  3. HYDROCHLOROTHIAZIDE [Concomitant]
     Dosage: 37.5 MG, UNK
     Route: 048
  4. MONOPRIL [Concomitant]
     Dosage: 5 MG, UNK
     Route: 048
  5. CARDIZEM [Concomitant]
     Dosage: 120 MG, UNK
     Route: 048
  6. LOSEC                              /00661201/ [Concomitant]
     Dosage: 20 MG, UNK
     Route: 048
  7. LIPITOR [Concomitant]
     Dosage: 20 MG, UNK
     Route: 048
  8. LASIX                              /00032601/ [Concomitant]
  9. HUMALOG                            /00030501/ [Concomitant]
  10. DIGOXIN [Concomitant]

REACTIONS (1)
  - CARDIAC FAILURE CONGESTIVE [None]
